FAERS Safety Report 6529075-0 (Version None)
Quarter: 2009Q4

REPORT INFORMATION
  Report Type: 
  Country: None (occurrence: None)
  Receive Date: 20091222
  Receipt Date: 20091214
  Transmission Date: 20100525
  Serious: Yes (Other)
  Sender: FDA-Public Use
  Company Number: AE-2009-309

PATIENT
  Age: 40 Year
  Sex: Female
  Weight: 60 kg

DRUGS (8)
  1. HYDROXYCHLOROQUINE SULFATE [Suspect]
     Indication: RHEUMATOID ARTHRITIS
     Dosage: 200MG, QD, ORAL
     Route: 048
  2. DICLOFENAC [Suspect]
     Dosage: 75MG, QD
  3. CITALOPRAM [Suspect]
     Dosage: QD
  4. CLOPIDOGREL [Suspect]
     Dosage: QD
  5. DIHYDROCODEINE BITARTRATE INJ [Suspect]
     Dosage: QD, ORAL
     Route: 048
  6. ENBREL [Suspect]
     Indication: PSORIATIC ARTHROPATHY
     Dosage: 25MG, 2/WEEK, SUBCUTANEOUS
     Route: 058
     Dates: start: 20041210
  7. FOLIC ACID [Suspect]
     Dosage: QD
  8. METHOTREXATE [Suspect]
     Indication: RHEUMATOID ARTHRITIS
     Dosage: 25MG, QD, SUBCUTANEOUS
     Route: 058

REACTIONS (1)
  - GALACTORRHOEA [None]
